FAERS Safety Report 4849466-3 (Version None)
Quarter: 2005Q4

REPORT INFORMATION
  Report Type: 
  Country: None (occurrence: None)
  Receive Date: 20051207
  Receipt Date: 20051124
  Transmission Date: 20060501
  Serious: Yes (Death)
  Sender: FDA-Public Use
  Company Number: 2005161724

PATIENT
  Age: 38 Year
  Sex: Male
  Weight: 60 kg

DRUGS (2)
  1. SOLU-MEDROL [Suspect]
     Indication: SCLEROSING ENCAPSULATING PERITONITIS
     Dosage: 1000 MG, INTRAVENOUS
     Route: 042
     Dates: start: 20010101
  2. PREDNISONE [Suspect]
     Indication: SCLEROSING ENCAPSULATING PERITONITIS
     Dosage: 20 MG
     Dates: start: 20010101

REACTIONS (16)
  - ABDOMINAL PAIN UPPER [None]
  - ASCITES [None]
  - DISEASE PROGRESSION [None]
  - DISSEMINATED INTRAVASCULAR COAGULATION [None]
  - DUODENAL PERFORATION [None]
  - DUODENAL ULCER [None]
  - FLATULENCE [None]
  - HEPATIC FAILURE [None]
  - JAUNDICE [None]
  - PYREXIA [None]
  - SEPSIS [None]
  - SHOCK [None]
  - SKIN DISORDER [None]
  - SMALL INTESTINAL STENOSIS [None]
  - WOUND DRAINAGE [None]
  - WOUND EVISCERATION [None]
